FAERS Safety Report 9458304 (Version 2)
Quarter: 2013Q3

REPORT INFORMATION
  Report Type: Spontaneous
  Country: US (occurrence: US)
  Receive Date: 20130814
  Receipt Date: 20130911
  Transmission Date: 20140515
  Serious: Yes (Other)
  Sender: FDA-Public Use
  Company Number: US-009507513-1308USA004943

PATIENT
  Age: 63 Year
  Sex: Male
  Weight: 95.69 kg

DRUGS (3)
  1. ZOCOR [Suspect]
     Indication: BLOOD CHOLESTEROL INCREASED
     Dosage: 40 MG QD
     Route: 048
     Dates: start: 200805, end: 201307
  2. BYSTOLIC [Concomitant]
     Dosage: 5 MG, QD
  3. LOSARTAN POTASSIUM [Concomitant]
     Dosage: 50 MG, QD

REACTIONS (3)
  - Rhabdomyolysis [Recovered/Resolved]
  - Muscle spasms [Recovered/Resolved]
  - Blood creatine phosphokinase increased [Recovered/Resolved]
